FAERS Safety Report 6582153-2 (Version None)
Quarter: 2010Q1

REPORT INFORMATION
  Report Type: 
  Country: None (occurrence: None)
  Receive Date: 20100216
  Receipt Date: 20100204
  Transmission Date: 20100710
  Serious: Yes (Hospitalization)
  Sender: FDA-Public Use
  Company Number: FR-ELI_LILLY_AND_COMPANY-FR201002001345

PATIENT
  Sex: Male
  Weight: 72 kg

DRUGS (11)
  1. GEMCITABINE HCL [Suspect]
     Indication: NON-SMALL CELL LUNG CANCER
     Dosage: 1250 MG/M2, D1 AND D8 OF UNKNOWN CYCLE
     Route: 042
     Dates: start: 20081014, end: 20090106
  2. CISPLATIN [Suspect]
     Indication: NON-SMALL CELL LUNG CANCER
     Dosage: 80 MG/M2,D1 OF UNKNOWN CYCLE
     Route: 042
     Dates: start: 20081014, end: 20081229
  3. PEMETREXED [Suspect]
     Indication: NON-SMALL CELL LUNG CANCER
     Dosage: 500 MG/M2, UNKNOWN
     Route: 042
     Dates: start: 20090402
  4. FOLIC ACID [Concomitant]
     Indication: VITAMIN SUPPLEMENTATION
  5. VITAMIN B-12 [Concomitant]
     Indication: VITAMIN SUPPLEMENTATION
  6. DEXAMETHASONE [Concomitant]
     Indication: PROPHYLAXIS
  7. OXYCONTIN [Concomitant]
  8. OXYNORM [Concomitant]
  9. INNOHEP [Concomitant]
  10. CARDENSIEL [Concomitant]
  11. CLASTOBAN [Concomitant]

REACTIONS (1)
  - CAUDA EQUINA SYNDROME [None]
